FAERS Safety Report 7126122-2 (Version None)
Quarter: 2010Q4

REPORT INFORMATION
  Report Type: 
  Country: None (occurrence: None)
  Receive Date: 20101129
  Receipt Date: 20101116
  Transmission Date: 20110411
  Serious: Yes (Hospitalization)
  Sender: FDA-Public Use
  Company Number: FR-JNJFOC-20101108268

PATIENT
  Age: 34 Year
  Sex: Male

DRUGS (6)
  1. TOPALGIC [Suspect]
     Indication: ERYSIPELAS
     Route: 048
  2. LOVENOX [Suspect]
     Indication: ERYSIPELAS
     Route: 058
  3. PENICILLIN G SODIUM [Suspect]
     Indication: ERYSIPELAS
     Dosage: 20X10^6 IU
     Route: 042
  4. DAFALGAN [Suspect]
     Indication: ERYSIPELAS
     Route: 048
  5. TAZOCILLINE [Suspect]
     Indication: JOINT ABSCESS
     Route: 042
  6. GENTAMICIN [Suspect]
     Indication: JOINT ABSCESS
     Route: 042

REACTIONS (11)
  - ABSCESS [None]
  - COBB SYNDROME [None]
  - DERMATITIS BULLOUS [None]
  - EOSINOPHILIA [None]
  - EYELID OEDEMA [None]
  - FACE OEDEMA [None]
  - NEUTROPHILIA [None]
  - OEDEMA PERIPHERAL [None]
  - PRURITUS [None]
  - RASH MACULO-PAPULAR [None]
  - SKIN EXFOLIATION [None]
